FAERS Safety Report 20072428 (Version 1)
Quarter: 2021Q4

REPORT INFORMATION
  Report Type: Spontaneous
  Country: US (occurrence: US)
  Receive Date: 20211116
  Receipt Date: 20211116
  Transmission Date: 20220304
  Serious: No
  Sender: FDA-Public Use
  Company Number: US-AUROBINDO-AUR-APL-2020-063306

PATIENT
  Age: 57 Year
  Sex: Female
  Weight: 106 kg

DRUGS (3)
  1. MODAFINIL [Suspect]
     Active Substance: MODAFINIL
     Indication: Narcolepsy
     Dosage: 200 MILLIGRAM, ONCE A DAY
     Route: 048
     Dates: start: 20200618
  2. TRAZODONE [Concomitant]
     Active Substance: TRAZODONE HYDROCHLORIDE
     Indication: Product used for unknown indication
     Dosage: 150 MILLIGRAM, NIGHT
     Route: 065
  3. LEVOTHYROXINE [Concomitant]
     Active Substance: LEVOTHYROXINE
     Indication: Product used for unknown indication
     Dosage: 0.1 MICROGRAM, MORNING
     Route: 065

REACTIONS (2)
  - Drug ineffective [Unknown]
  - Product substitution issue [Unknown]
